FAERS Safety Report 21487232 (Version 2)
Quarter: 2022Q4

REPORT INFORMATION
  Report Type: Spontaneous
  Country: BR (occurrence: BR)
  Receive Date: 20221020
  Receipt Date: 20221228
  Transmission Date: 20230112
  Serious: Yes (Death, Other)
  Sender: FDA-Public Use
  Company Number: BR-BoehringerIngelheim-2022-BI-197919

PATIENT
  Age: 48 Year
  Sex: Female

DRUGS (1)
  1. ALTEPLASE [Suspect]
     Active Substance: ALTEPLASE
     Indication: Haemorrhagic stroke
     Route: 065

REACTIONS (3)
  - Brain death [Fatal]
  - Haemorrhagic stroke [Unknown]
  - Product prescribing error [Unknown]
